FAERS Safety Report 6772567-X (Version None)
Quarter: 2010Q2

REPORT INFORMATION
  Report Type: 
  Country: None (occurrence: None)
  Receive Date: 20100616
  Receipt Date: 20090826
  Transmission Date: 20101027
  Serious: No
  Sender: FDA-Public Use
  Company Number: US-ASTRAZENECA-2009SE09957

PATIENT
  Age: 6 Year
  Sex: Male

DRUGS (3)
  1. PULMICORT FLEXHALER [Suspect]
     Indication: HYPERSENSITIVITY
     Dosage: 360 MCG
     Route: 055
     Dates: start: 20090801
  2. ZYRTEC [Concomitant]
  3. NASONEX [Concomitant]

REACTIONS (3)
  - ABDOMINAL PAIN UPPER [None]
  - FATIGUE [None]
  - FEELING ABNORMAL [None]
